FAERS Safety Report 7366408-X (Version None)
Quarter: 2011Q1

REPORT INFORMATION
  Report Type: 
  Country: None (occurrence: None)
  Receive Date: 20110225
  Receipt Date: 20101129
  Transmission Date: 20110831
  Serious: Yes (Hospitalization)
  Sender: FDA-Public Use
  Company Number: 319278

PATIENT
  Age: 63 Year
  Sex: Female
  Weight: 108.8 kg

DRUGS (2)
  1. VICTOZA [Suspect]
     Indication: TYPE 2 DIABETES MELLITUS
     Dosage: 0.6 MG, SUBCUTANEOUS, 1.2 SUBCUTANEOUS, 1.8  MG, SUBCUTANEOUS
     Route: 058
     Dates: end: 20101105
  2. VICTOZA [Suspect]
     Indication: TYPE 2 DIABETES MELLITUS
     Dosage: 0.6 MG, SUBCUTANEOUS, 1.2 SUBCUTANEOUS, 1.8  MG, SUBCUTANEOUS
     Route: 058
     Dates: start: 20100920

REACTIONS (1)
  - PANCREATITIS ACUTE [None]
